FAERS Safety Report 5258990-3 (Version None)
Quarter: 2007Q1

REPORT INFORMATION
  Report Type: 
  Country: None (occurrence: None)
  Receive Date: 20070305
  Receipt Date: 20070216
  Transmission Date: 20070707
  Serious: Yes (Other)
  Sender: FDA-Public Use
  Company Number: 2007RR-05941

PATIENT
  Age: 35 Year
  Sex: Male

DRUGS (1)
  1. IBUPROFEN [Suspect]
     Dosage: 400 MG, UNK, ORAL
     Route: 048

REACTIONS (4)
  - CHOLESTASIS [None]
  - PIGMENTATION DISORDER [None]
  - PRURITUS GENERALISED [None]
  - RASH MACULO-PAPULAR [None]
